FAERS Safety Report 20044532 (Version 1)
Quarter: 2021Q4

REPORT INFORMATION
  Report Type: Spontaneous
  Country: CN (occurrence: CN)
  Receive Date: 20211108
  Receipt Date: 20211108
  Transmission Date: 20220303
  Serious: Yes (Other)
  Sender: FDA-Public Use
  Company Number: CN-ORGANON-O2111CHN000592

PATIENT
  Age: 79 Year
  Sex: Male
  Weight: 42 kg

DRUGS (1)
  1. SINGULAIR [Suspect]
     Active Substance: MONTELUKAST SODIUM
     Indication: Antiallergic therapy
     Dosage: 10 MG, QD
     Route: 048
     Dates: start: 20211009, end: 20211027

REACTIONS (4)
  - Hallucination [Unknown]
  - Sensory disturbance [Unknown]
  - Illusion [Unknown]
  - Product use in unapproved indication [Unknown]

NARRATIVE: CASE EVENT DATE: 20211009
